FAERS Safety Report 22161021 (Version 2)
Quarter: 2023Q2

REPORT INFORMATION
  Report Type: Spontaneous
  Country: DE (occurrence: DE)
  Receive Date: 20230331
  Receipt Date: 20230410
  Transmission Date: 20230721
  Serious: Yes (Other)
  Sender: FDA-Public Use
  Company Number: DE-BAYER-2023A038721

PATIENT
  Age: 62 Year
  Sex: Female

DRUGS (2)
  1. STIVARGA [Suspect]
     Active Substance: REGORAFENIB
     Indication: Glioblastoma
     Dosage: UNK
     Dates: start: 202302
  2. STIVARGA [Suspect]
     Active Substance: REGORAFENIB
     Indication: Glioblastoma
     Dosage: UNK

REACTIONS (7)
  - Glioblastoma [None]
  - Epilepsy [None]
  - Epilepsy [None]
  - Generalised tonic-clonic seizure [None]
  - Hemiparesis [None]
  - Off label use [None]
  - General physical health deterioration [None]

NARRATIVE: CASE EVENT DATE: 20230201
